FAERS Safety Report 21562458 (Version 1)
Quarter: 2022Q4

REPORT INFORMATION
  Report Type: Spontaneous
  Country: TW (occurrence: TW)
  Receive Date: 20221107
  Receipt Date: 20221107
  Transmission Date: 20230113
  Serious: Yes (Disabling, Other)
  Sender: FDA-Public Use
  Company Number: TW-009507513-2211TWN002053

PATIENT
  Age: 65 Year
  Sex: Male
  Weight: 58 kg

DRUGS (6)
  1. KEYTRUDA [Suspect]
     Active Substance: PEMBROLIZUMAB
     Indication: Hepatocellular carcinoma
     Dosage: 100 MILLIGRAM, QD
     Route: 042
     Dates: start: 20211125, end: 20220819
  2. LENVATINIB MESYLATE [Suspect]
     Active Substance: LENVATINIB MESYLATE
     Indication: Hepatocellular carcinoma
     Dosage: 10 MILLIGRAM, QD (SUNDAY OFF)
     Dates: start: 20211221, end: 20220824
  3. MORPHINE SULFATE [Concomitant]
     Active Substance: MORPHINE SULFATE
     Indication: Analgesic therapy
     Dosage: 15 MILLIGRAM, QD
     Route: 048
     Dates: start: 20210603
  4. FENTANYL CITRATE [Concomitant]
     Active Substance: FENTANYL CITRATE
     Indication: Breakthrough pain
     Dosage: 200 MICROGRAM, QD
     Route: 048
     Dates: start: 20211209
  5. DIETARY SUPPLEMENT\HERBALS\MILK THISTLE [Concomitant]
     Active Substance: DIETARY SUPPLEMENT\HERBALS\MILK THISTLE
     Indication: Chronic hepatitis
     Dosage: 150 MILLIGRAM, QD
     Route: 048
     Dates: start: 20210121
  6. CELECOXIB [Concomitant]
     Active Substance: CELECOXIB
     Indication: Osteoarthritis
     Dosage: 200 MILLIGRAM, QD
     Route: 048
     Dates: start: 20201217

REACTIONS (9)
  - Cyanosis [Recovered/Resolved with Sequelae]
  - Monoplegia [Unknown]
  - Impaired healing [Unknown]
  - Peripheral artery thrombosis [Unknown]
  - Paraesthesia [Unknown]
  - Hypoaesthesia [Unknown]
  - Pulse absent [Unknown]
  - Iliac artery disease [Unknown]
  - Off label use [Unknown]

NARRATIVE: CASE EVENT DATE: 20211221
